FAERS Safety Report 10016619 (Version 1)
Quarter: 2014Q1

REPORT INFORMATION
  Report Type: Report from Study
  Country: AT (occurrence: AT)
  Receive Date: 20140317
  Receipt Date: 20140317
  Transmission Date: 20141002
  Serious: Yes (Other)
  Sender: FDA-Public Use
  Company Number: PHHY2014AT027296

PATIENT
  Age: 66 Year
  Sex: Female
  Weight: 91 kg

DRUGS (15)
  1. MYCOPHENOLIC ACID [Suspect]
     Indication: IMMUNOSUPPRESSION
     Dosage: 720 MG, DAILY
     Dates: start: 20110909
  2. MYCOPHENOLIC ACID [Suspect]
     Dosage: 1080 MG, DAILY
     Dates: start: 20120906
  3. BASILIXIMAB [Suspect]
     Indication: IMMUNOSUPPRESSION
     Dosage: 20 MG, DAILY
  4. CICLOSPORIN [Suspect]
     Indication: IMMUNOSUPPRESSION
     Dosage: 150 MG, DAILY
  5. CICLOSPORIN [Suspect]
     Dosage: 125MG, DAILY
     Dates: start: 20110909
  6. CICLOSPORIN [Suspect]
     Dosage: 100 MG, DAILY
     Dates: start: 20120906
  7. APREDNISLON [Suspect]
     Indication: IMMUNOSUPPRESSION
     Dosage: 75 MG, DAILY
     Dates: start: 20110909
  8. APREDNISLON [Suspect]
     Dosage: 5 MG, DAILY
     Dates: start: 20110909
  9. APREDNISLON [Suspect]
     Dosage: 2.5 MG, DAILY
     Dates: start: 20111216
  10. NEXIUM//ESOMEPRAZOLE SODIUM [Concomitant]
     Indication: PROPHYLAXIS AGAINST GASTROINTESTINAL ULCER
     Dosage: 40 MG, QD
  11. ITERIUM [Concomitant]
     Indication: HYPERTENSION
     Dosage: 1 MG, QD
  12. FRAGMIN [Concomitant]
     Indication: THROMBOSIS PROPHYLAXIS
     Dosage: 2500 IU, QD
     Route: 058
  13. EXFORGE [Concomitant]
     Indication: HYPERTENSION
  14. SORTIS [Concomitant]
     Indication: HYPERCHOLESTEROLAEMIA
     Dosage: 20 MG, QD
  15. LASIX [Concomitant]
     Indication: OEDEMA

REACTIONS (10)
  - Toxicity to various agents [Unknown]
  - Polyneuropathy [Unknown]
  - Venous insufficiency [Unknown]
  - Vitamin D deficiency [Unknown]
  - Oedema [Unknown]
  - Blood glucose increased [Unknown]
  - Hypercholesterolaemia [Unknown]
  - Hyperuricaemia [Unknown]
  - Blood pressure increased [Unknown]
  - Blood creatinine increased [Unknown]
